FAERS Safety Report 5270190-X (Version None)
Quarter: 2007Q1

REPORT INFORMATION
  Report Type: 
  Country: None (occurrence: None)
  Receive Date: 20070320
  Receipt Date: 20070308
  Transmission Date: 20070707
  Serious: Yes (Death)
  Sender: FDA-Public Use
  Company Number: US-PFIZER INC-2007020184

PATIENT
  Age: 48 Year
  Sex: Male

DRUGS (2)
  1. NEURONTIN [Suspect]
     Indication: DEPRESSION
     Dates: start: 20020701, end: 20021227
  2. NEURONTIN [Suspect]
     Indication: BIPOLAR DISORDER

REACTIONS (2)
  - COMPLETED SUICIDE [None]
  - TRAUMATIC BRAIN INJURY [None]
